FAERS Safety Report 4806073-6 (Version None)
Quarter: 2005Q4

REPORT INFORMATION
  Report Type: 
  Country: None (occurrence: None)
  Receive Date: 20051021
  Receipt Date: 20051006
  Transmission Date: 20060501
  Serious: Yes (Hospitalization)
  Sender: FDA-Public Use
  Company Number: JP-ROCHE-420157

PATIENT
  Age: 67 Year
  Sex: Female

DRUGS (5)
  1. PANALDINE [Suspect]
     Indication: THROMBOSIS PROPHYLAXIS
     Dosage: OTHER INDICATIONS: STENT PLACEMENT, ANGINA PECTORIS.
     Route: 048
     Dates: start: 20050701, end: 20050811
  2. ALLOPURINOL [Suspect]
     Route: 048
     Dates: start: 20050701, end: 20050812
  3. LIVALO [Suspect]
     Indication: HYPERLIPIDAEMIA
     Route: 048
     Dates: start: 20050331, end: 20050812
  4. ASPIRIN [Concomitant]
     Indication: ANGINA PECTORIS
     Route: 048
     Dates: start: 20050701
  5. FRANDOL [Concomitant]
     Indication: ANGINA PECTORIS
     Dosage: TRADE NAME REPORTED AS ^FRANDOL S^.
     Route: 046
     Dates: start: 20050701

REACTIONS (3)
  - DYSGEUSIA [None]
  - GRANULOCYTOPENIA [None]
  - POST PROCEDURAL COMPLICATION [None]
